FAERS Safety Report 8876310 (Version 1)
Quarter: 2012Q4

REPORT INFORMATION
  Report Type: 
  Country: US (occurrence: US)
  Receive Date: 20121023
  Receipt Date: 20121023
  Transmission Date: 20130627
  Serious: No
  Sender: FDA-Public Use
  Company Number: US-ASTRAZENECA-2012SE78491

PATIENT
  Sex: Male

DRUGS (6)
  1. SEROQUEL [Suspect]
     Indication: HALLUCINATION
     Route: 048
     Dates: start: 2011, end: 201209
  2. SEROQUEL [Suspect]
     Indication: ABNORMAL DREAMS
     Route: 048
     Dates: start: 2011, end: 201209
  3. SEROQUEL [Suspect]
     Indication: AGITATION
     Route: 048
     Dates: start: 2011, end: 201209
  4. LOMOTIL [Concomitant]
     Indication: DIARRHOEA
  5. COLESTID [Concomitant]
     Indication: BLOOD CHOLESTEROL ABNORMAL
  6. ATIVAN [Concomitant]
     Indication: AGITATION

REACTIONS (5)
  - Agitation [Unknown]
  - Dementia [Unknown]
  - Hallucination [Unknown]
  - Diarrhoea [Unknown]
  - Abnormal dreams [Unknown]
